FAERS Safety Report 23240736 (Version 2)
Quarter: 2023Q4

REPORT INFORMATION
  Report Type: Report from Study
  Country: US (occurrence: US)
  Receive Date: 20231129
  Receipt Date: 20231224
  Transmission Date: 20240110
  Serious: No
  Sender: FDA-Public Use
  Company Number: US-002147023-NVSC2023US253785

PATIENT
  Sex: Female

DRUGS (1)
  1. ENTRESTO [Suspect]
     Active Substance: SACUBITRIL\VALSARTAN
     Indication: Product used for unknown indication
     Dosage: 24/26 MG, BID
     Route: 065
     Dates: start: 202311

REACTIONS (17)
  - Epistaxis [Unknown]
  - Sinusitis [Unknown]
  - Decreased appetite [Unknown]
  - Weight increased [Unknown]
  - Depression [Unknown]
  - Anxiety [Recovering/Resolving]
  - Productive cough [Recovering/Resolving]
  - Drug ineffective [Unknown]
  - Cough [Unknown]
  - Dizziness [Unknown]
  - Chromaturia [Unknown]
  - Pollakiuria [Unknown]
  - Glomerular filtration rate decreased [Unknown]
  - Nasopharyngitis [Unknown]
  - Weight fluctuation [Unknown]
  - Blood cholesterol decreased [Recovering/Resolving]
  - Glycosylated haemoglobin decreased [Recovering/Resolving]
